FAERS Safety Report 13257232 (Version 4)
Quarter: 2017Q1

REPORT INFORMATION
  Report Type: Spontaneous
  Country: IT (occurrence: IT)
  Receive Date: 20170221
  Receipt Date: 20170310
  Transmission Date: 20170428
  Serious: Yes (Hospitalization, Other)
  Sender: FDA-Public Use
  Company Number: IT-SA-2017SA027557

PATIENT
  Age: 24 Year
  Sex: Female
  Weight: 70 kg

DRUGS (9)
  1. METHYLPREDNISOLONE. [Concomitant]
     Active Substance: METHYLPREDNISOLONE
     Dates: start: 20170213, end: 20170215
  2. SOLU-MEDROL [Concomitant]
     Active Substance: METHYLPREDNISOLONE SODIUM SUCCINATE
     Indication: PREMEDICATION
     Route: 042
     Dates: start: 20170213, end: 20170215
  3. LEMTRADA [Suspect]
     Active Substance: ALEMTUZUMAB
     Indication: RELAPSING-REMITTING MULTIPLE SCLEROSIS
     Route: 041
     Dates: start: 20170213, end: 20170215
  4. LANSOX [Concomitant]
     Active Substance: LANSOPRAZOLE
     Indication: PREMEDICATION
     Route: 048
     Dates: start: 20170213, end: 20170216
  5. ZIRTEC [Concomitant]
     Active Substance: CETIRIZINE HYDROCHLORIDE
     Indication: PREMEDICATION
     Dates: start: 20170213, end: 20170216
  6. ACYCLOVIR. [Suspect]
     Active Substance: ACYCLOVIR
     Route: 065
  7. PARACETAMOL [Concomitant]
     Active Substance: ACETAMINOPHEN
     Indication: PREMEDICATION
     Dates: start: 20170213, end: 20170215
  8. ONDANSETRON [Concomitant]
     Active Substance: ONDANSETRON
     Indication: PREMEDICATION
     Dosage: DOSE:2 MILLIGRAM(S)/MILLILITRE
     Route: 042
     Dates: start: 20170213, end: 20170216
  9. ACYCLOVIR. [Concomitant]
     Active Substance: ACYCLOVIR
     Dates: start: 20170213

REACTIONS (12)
  - Bradycardia [Unknown]
  - Headache [Unknown]
  - Lymphocyte count decreased [Unknown]
  - Chest discomfort [Recovered/Resolved]
  - Angina pectoris [Unknown]
  - Electrocardiogram QT prolonged [Unknown]
  - Hypocapnia [Unknown]
  - Urticaria [Recovered/Resolved]
  - Myocardial necrosis marker increased [Recovered/Resolved]
  - Pyrexia [Recovered/Resolved]
  - Pleural effusion [Unknown]
  - Dyspnoea [Unknown]

NARRATIVE: CASE EVENT DATE: 201702
